FAERS Safety Report 25179942 (Version 1)
Quarter: 2025Q2

REPORT INFORMATION
  Report Type: Spontaneous
  Country: US (occurrence: None)
  Receive Date: 20250409
  Receipt Date: 20250409
  Transmission Date: 20250716
  Serious: Yes (Hospitalization)
  Sender: FDA-CTU
  Company Number: None

PATIENT
  Age: 77 Year
  Sex: Female
  Weight: 99 kg

DRUGS (11)
  1. EXPAREL [Suspect]
     Active Substance: BUPIVACAINE
     Indication: Pain
     Route: 042
     Dates: start: 20250404, end: 20250404
  2. Lyrics [Concomitant]
  3. CELEBREX [Concomitant]
     Active Substance: CELECOXIB
  4. LISINOPRIL [Concomitant]
     Active Substance: LISINOPRIL
  5. HYDROCHLOROTHIAZIDE [Concomitant]
     Active Substance: HYDROCHLOROTHIAZIDE
  6. SIMVASTATIN [Concomitant]
     Active Substance: SIMVASTATIN
  7. lactanoprost [Concomitant]
  8. TYLENOL [Concomitant]
     Active Substance: ACETAMINOPHEN
  9. VITAMIN D [Concomitant]
     Active Substance: VITAMIN D NOS
  10. TYLENOL [Concomitant]
     Active Substance: ACETAMINOPHEN
  11. VITAMIN D [Concomitant]
     Active Substance: VITAMIN D NOS

REACTIONS (1)
  - Seizure [None]

NARRATIVE: CASE EVENT DATE: 20250404
